FAERS Safety Report 7676193-X (Version None)
Quarter: 2011Q3

REPORT INFORMATION
  Report Type: 
  Country: None (occurrence: None)
  Receive Date: 20110811
  Receipt Date: 20110808
  Transmission Date: 20111222
  Serious: Yes (Other)
  Sender: FDA-Public Use
  Company Number: AR-AMGEN-ARGSP2011038287

PATIENT
  Age: 21 Year
  Sex: Female
  Weight: 53 kg

DRUGS (5)
  1. LEUCOVORIN CALCIUM [Concomitant]
     Dosage: UNK
  2. ENBREL [Suspect]
     Indication: RHEUMATOID ARTHRITIS
     Dosage: 50 MG, WEEKLY
     Route: 058
     Dates: start: 20000205
  3. DICLOFENAC SODIUM [Concomitant]
     Dosage: UNK
  4. METHOTREXAT                        /00113801/ [Concomitant]
     Dosage: UNK
  5. NAPROXEN [Concomitant]
     Dosage: UNK

REACTIONS (3)
  - UPPER LIMB FRACTURE [None]
  - OSTEOARTHRITIS [None]
  - OCULAR NEOPLASM [None]
